FAERS Safety Report 7033758-6 (Version None)
Quarter: 2010Q4

REPORT INFORMATION
  Report Type: 
  Country: None (occurrence: None)
  Receive Date: 20101007
  Receipt Date: 20100927
  Transmission Date: 20110411
  Serious: Yes (Death, Hospitalization, Other)
  Sender: FDA-Public Use
  Company Number: PHHO2005JP05676

PATIENT
  Sex: Male
  Weight: 66 kg

DRUGS (20)
  1. STI571/CGP57148B T35717+CAPS [Suspect]
     Indication: GASTROINTESTINAL STROMAL TUMOUR
     Dosage: 400 MG DAILY
     Route: 048
     Dates: start: 20040413, end: 20040510
  2. STI571/CGP57148B T35717+CAPS [Suspect]
     Dosage: 300 MG DAILY
     Route: 048
     Dates: start: 20050102
  3. STI571/CGP57148B T35717+CAPS [Suspect]
     Dosage: 400 MG DAILY
     Route: 048
     Dates: start: 20060413, end: 20060622
  4. STI571/CGP57148B T35717+CAPS [Suspect]
     Dosage: 600 MG DAILY
     Route: 048
     Dates: start: 20060623, end: 20061116
  5. STI571/CGP57148B T35717+CAPS [Suspect]
     Dosage: 800 MG DAILY
     Route: 048
     Dates: start: 20061117, end: 20070628
  6. GASTER D [Concomitant]
     Indication: GASTROINTESTINAL STROMAL TUMOUR
     Dosage: 20 MG, UNK
     Route: 048
     Dates: start: 20040413, end: 20040427
  7. GASMOTIN [Concomitant]
     Indication: GASTROINTESTINAL STROMAL TUMOUR
     Dosage: 15 MG, UNK
     Route: 048
     Dates: start: 20040413, end: 20040427
  8. DIFLUCAN [Concomitant]
     Indication: INFECTION PROPHYLAXIS
     Dosage: 200 MG, UNK
     Route: 048
     Dates: start: 20040510, end: 20040516
  9. CRAVIT [Concomitant]
     Indication: INFECTION PROPHYLAXIS
     Dosage: 300 MG, UNK
     Route: 048
     Dates: start: 20040510, end: 20040516
  10. PANSPORIN [Concomitant]
     Indication: INFECTION PROPHYLAXIS
     Dosage: 600 MG, UNK
     Route: 048
     Dates: start: 20040517, end: 20040523
  11. METHYCOBAL [Concomitant]
     Indication: HYPOAESTHESIA
     Dosage: 1500 UG, UNK
     Route: 048
     Dates: start: 20060417, end: 20060430
  12. MAGNESIUM OXIDE [Concomitant]
     Indication: CONSTIPATION PROPHYLAXIS
     Dosage: UNK
     Route: 048
     Dates: start: 20060630, end: 20060811
  13. DEPAS [Concomitant]
     Indication: INSOMNIA
     Dosage: UNK
     Route: 048
     Dates: start: 20060721, end: 20060726
  14. MUCOSTA [Concomitant]
     Indication: GASTRITIS PROPHYLAXIS
     Dosage: 300 MG, UNK
     Route: 048
     Dates: start: 20060729, end: 20070302
  15. RHYTHMY [Concomitant]
     Indication: INSOMNIA
     Dosage: UNK
     Route: 048
     Dates: start: 20060627, end: 20060810
  16. PREDONINE [Concomitant]
     Indication: GASTROINTESTINAL STROMAL TUMOUR
     Dosage: 10 MG, UNK
     Route: 048
     Dates: start: 20070126
  17. PREDONINE [Concomitant]
     Dosage: 10 MG, UNK
     Route: 048
     Dates: end: 20070628
  18. GASTER [Concomitant]
     Indication: GASTRITIS PROPHYLAXIS
     Dosage: 40 MG, UNK
     Route: 048
     Dates: start: 20070303, end: 20070628
  19. MEXITIL [Concomitant]
     Indication: HYPOAESTHESIA
     Dosage: 300 MG, UNK
     Route: 048
     Dates: start: 20070518, end: 20070628
  20. MINOCYCLINE HCL [Concomitant]
     Indication: INFECTION PROPHYLAXIS
     Dosage: 200 MG, UNK
     Route: 048
     Dates: start: 20040524, end: 20040530

REACTIONS (13)
  - C-REACTIVE PROTEIN INCREASED [None]
  - CANCER PAIN [None]
  - CONDITION AGGRAVATED [None]
  - GASTROINTESTINAL STROMAL TUMOUR [None]
  - MALIGNANT NEOPLASM PROGRESSION [None]
  - PERIODONTITIS [None]
  - PLATELET COUNT DECREASED [None]
  - PYREXIA [None]
  - RENAL IMPAIRMENT [None]
  - SINUSITIS [None]
  - TOOTH EXTRACTION [None]
  - TOOTHACHE [None]
  - WHITE BLOOD CELL COUNT DECREASED [None]
